FAERS Safety Report 10869626 (Version 2)
Quarter: 2015Q2

REPORT INFORMATION
  Report Type: Spontaneous
  Country: US (occurrence: US)
  Receive Date: 20150226
  Receipt Date: 20150512
  Transmission Date: 20150821
  Serious: Yes (Other)
  Sender: FDA-Public Use
  Company Number: US-GLAXOSMITHKLINE-US2015024338

PATIENT
  Sex: Male

DRUGS (5)
  1. DILANTIN [Concomitant]
     Active Substance: PHENYTOIN
  2. FOSAMAX [Concomitant]
     Active Substance: ALENDRONATE SODIUM
  3. CALCIUM [Concomitant]
     Active Substance: CALCIUM
  4. LAMICTAL XR [Suspect]
     Active Substance: LAMOTRIGINE
     Indication: EPILEPSY
     Dosage: 200 MG, QD
     Route: 048
     Dates: start: 201410
  5. PRIMIDONE. [Concomitant]
     Active Substance: PRIMIDONE

REACTIONS (1)
  - Seizure [Unknown]
